FAERS Safety Report 4926188-1 (Version None)
Quarter: 2006Q1

REPORT INFORMATION
  Report Type: 
  Country: None (occurrence: None)
  Receive Date: 20060224
  Receipt Date: 20060224
  Transmission Date: 20060701
  Serious: Yes (Hospitalization)
  Sender: FDA-Public Use
  Company Number: None

PATIENT
  Sex: Male

DRUGS (3)
  1. QUINAPRIL [Suspect]
     Indication: HYPERTENSION
     Dosage: 2 TABS PO BID
     Route: 048
     Dates: start: 20050101, end: 20060127
  2. ATENOLOL [Concomitant]
  3. TERAZOSIN [Concomitant]

REACTIONS (1)
  - BLOOD PRESSURE DECREASED [None]
